FAERS Safety Report 7711522-X (Version None)
Quarter: 2011Q3

REPORT INFORMATION
  Report Type: 
  Country: None (occurrence: None)
  Receive Date: 20110822
  Receipt Date: 20110811
  Transmission Date: 20111222
  Serious: Yes (Other)
  Sender: FDA-Public Use
  Company Number: WAES 1108USA01918

PATIENT
  Sex: Male

DRUGS (1)
  1. PROSCAR [Suspect]
     Dosage: 5 MG/DAILY
     Route: 048

REACTIONS (1)
  - PROSTATE CANCER [None]
